FAERS Safety Report 12987038 (Version 2)
Quarter: 2017Q2

REPORT INFORMATION
  Report Type: Spontaneous
  Country: DE (occurrence: DE)
  Receive Date: 20161130
  Receipt Date: 20170411
  Transmission Date: 20170830
  Serious: Yes (Death)
  Sender: FDA-Public Use
  Company Number: DE-TEVA-713906GER

PATIENT
  Age: 81 Year
  Sex: Male

DRUGS (19)
  1. CLOPIDOGREL [Suspect]
     Active Substance: CLOPIDOGREL BISULFATE
     Indication: STENT PLACEMENT
     Dosage: 75 MILLIGRAM DAILY;
     Route: 048
     Dates: start: 201610
  2. PIRITRAMID PERFUSOR [Concomitant]
     Dosage: 1-2 ML/H
     Dates: end: 20161021
  3. PRADAXA [Suspect]
     Active Substance: DABIGATRAN ETEXILATE MESYLATE
     Indication: ATRIAL FIBRILLATION
     Dosage: 220 MILLIGRAM DAILY;
     Route: 048
     Dates: end: 20161017
  4. PREDNISOLON [Concomitant]
     Active Substance: PREDNISOLONE
     Dosage: 10 MILLIGRAM DAILY;
     Route: 048
  5. CISATRACURIUM. [Concomitant]
     Active Substance: CISATRACURIUM
     Dates: end: 20161021
  6. NOVAMINSULFON [Concomitant]
     Active Substance: METAMIZOLE
     Dosage: 2000MG EVERY 2 DAYS
     Route: 048
  7. MOVICOL [Concomitant]
     Active Substance: POLYETHYLENE GLYCOL 3350\POTASSIUM CHLORIDE\SODIUM BICARBONATE\SODIUM CHLORIDE
     Dosage: 1 DOSAGE FORMS DAILY;
     Dates: end: 20161021
  8. ATORVASTATIN [Concomitant]
     Active Substance: ATORVASTATIN
  9. KOCHSALZLOESUNG [Concomitant]
     Dates: end: 20161021
  10. CLINDAMYCIN. [Concomitant]
     Active Substance: CLINDAMYCIN
     Dosage: 900 MILLIGRAM DAILY;
     Route: 042
     Dates: end: 20161021
  11. ACC [Concomitant]
     Active Substance: ACETYLCYSTEINE
     Dosage: 900 MILLIGRAM DAILY;
     Route: 042
  12. ARTERENOL PERFUSOR [Concomitant]
     Route: 042
     Dates: end: 20161021
  13. FUROSEMID [Concomitant]
     Active Substance: FUROSEMIDE
     Dates: end: 20161021
  14. PROPOFOL 2% [Concomitant]
     Active Substance: PROPOFOL
     Dates: end: 20161021
  15. PANTOPRAZOL [Concomitant]
     Active Substance: PANTOPRAZOLE SODIUM
     Dosage: 40 MILLIGRAM DAILY;
     Route: 042
     Dates: end: 20161021
  16. SOLU-DECORTIN [Concomitant]
     Active Substance: PREDNISOLONE SODIUM SUCCINATE
     Dosage: 100 MILLIGRAM DAILY;
     Dates: end: 20161021
  17. TRAMADOLOR LONG 50 [Concomitant]
     Dosage: 100 MG EVERY 2 DAYS
     Route: 048
  18. RINGER-ACETAT [Concomitant]
     Dates: end: 20161021
  19. PIPERACILLIN/TAZOBACTAM 4,5 G [Concomitant]
     Dosage: 2 DOSAGE FORMS DAILY;
     Route: 042

REACTIONS (3)
  - Brain oedema [Fatal]
  - Cerebral haemorrhage [Fatal]
  - Intraventricular haemorrhage [Fatal]

NARRATIVE: CASE EVENT DATE: 20161021
